FAERS Safety Report 6933430-4 (Version None)
Quarter: 2010Q3

REPORT INFORMATION
  Report Type: 
  Country: None (occurrence: None)
  Receive Date: 20100820
  Receipt Date: 20100806
  Transmission Date: 20110219
  Serious: Yes (Other)
  Sender: FDA-Public Use
  Company Number: ES-ELI_LILLY_AND_COMPANY-ES201008002078

PATIENT
  Sex: Female

DRUGS (6)
  1. FORTEO [Suspect]
     Indication: OSTEOPOROSIS
     Dosage: 20 UG, DAILY (1/D)
     Route: 058
     Dates: start: 20090527, end: 20100601
  2. SER ANTIRABIC [Concomitant]
     Indication: EAR DISORDER
     Dosage: 16 MG, 2/D
     Route: 048
     Dates: start: 20090701
  3. SIMVASTATIN [Concomitant]
     Indication: BLOOD CHOLESTEROL
     Dosage: 10 MG, DAILY (1/D)
     Route: 048
  4. EFFEDERM [Concomitant]
     Dosage: 10 MG, DAILY (1/D)
     Route: 048
  5. VALIUM [Concomitant]
     Dosage: 5 MG, DAILY (1/D)
     Route: 048
     Dates: start: 20100601
  6. LORAZEPAM A [Concomitant]
     Indication: INSOMNIA
     Dosage: 1 MG HALF A DAY, OTHER
     Dates: start: 20100601

REACTIONS (2)
  - BLOOD CALCIUM INCREASED [None]
  - PITUITARY TUMOUR BENIGN [None]
